FAERS Safety Report 9874430 (Version 1)
Quarter: 2014Q1

REPORT INFORMATION
  Report Type: Spontaneous
  Country: FR (occurrence: FR)
  Receive Date: 20140206
  Receipt Date: 20140206
  Transmission Date: 20141002
  Serious: Yes (Other)
  Sender: FDA-Public Use
  Company Number: FR-BRISTOL-MYERS SQUIBB COMPANY-20114732

PATIENT
  Age: 54 Year
  Sex: Female

DRUGS (1)
  1. IPILIMUMAB [Suspect]
     Indication: METASTATIC MALIGNANT MELANOMA
     Dosage: 1DF: 5MG/ML,10MG/KG FOR 12 WEEKS THEN ONCE EVERY 12 WEEKS FOR 2 YEARS.
     Route: 042
     Dates: start: 20130621

REACTIONS (1)
  - Granuloma skin [Recovered/Resolved]
